FAERS Safety Report 19824736 (Version 6)
Quarter: 2022Q1

REPORT INFORMATION
  Report Type: Report from Study
  Country: US (occurrence: US)
  Receive Date: 20210914
  Receipt Date: 20220206
  Transmission Date: 20220423
  Serious: No
  Sender: FDA-Public Use
  Company Number: NVSC2021US207231

PATIENT
  Age: 43 Year
  Sex: Female

DRUGS (1)
  1. COSENTYX [Suspect]
     Active Substance: SECUKINUMAB
     Indication: Psoriasis
     Dosage: 300 MG ( (Q WEEK FOR FIVE WEEKS ADN THEN Q FOUR)
     Route: 058
     Dates: start: 20210703

REACTIONS (5)
  - Fatigue [Unknown]
  - Pain [Recovering/Resolving]
  - Arthralgia [Unknown]
  - Psoriasis [Unknown]
  - Rash [Unknown]

NARRATIVE: CASE EVENT DATE: 20210906
